FAERS Safety Report 20939527 (Version 1)
Quarter: 2022Q2

REPORT INFORMATION
  Report Type: Other
  Country: US (occurrence: None)
  Receive Date: 20220609
  Receipt Date: 20220609
  Transmission Date: 20220721
  Serious: Yes (Other)
  Sender: FDA-Public Use
  Company Number: US-ROCHE-3112966

PATIENT
  Sex: Female
  Weight: 74.910 kg

DRUGS (6)
  1. RITUXAN [Suspect]
     Active Substance: RITUXIMAB
     Indication: Skin disorder
     Route: 041
     Dates: start: 201812, end: 201812
  2. RITUXAN [Suspect]
     Active Substance: RITUXIMAB
     Indication: Dermatomyositis
     Dosage: DAY 1 AND DAY 15, 4-500 MG DOSE REFILL 2 TIMES
     Route: 041
     Dates: start: 201901
  3. RITUXAN [Suspect]
     Active Substance: RITUXIMAB
     Indication: Hypergammaglobulinaemia
  4. RITUXAN [Suspect]
     Active Substance: RITUXIMAB
     Indication: Chronic cutaneous lupus erythematosus
  5. PREDNISONE [Concomitant]
     Active Substance: PREDNISONE
     Dates: end: 20190717
  6. IRON [Concomitant]
     Active Substance: IRON
     Indication: Anaemia
     Route: 048

REACTIONS (4)
  - Systemic lupus erythematosus [Not Recovered/Not Resolved]
  - Muscle strain [Not Recovered/Not Resolved]
  - Muscle tightness [Not Recovered/Not Resolved]
  - Off label use [Unknown]
